FAERS Safety Report 5143067-8 (Version None)
Quarter: 2006Q4

REPORT INFORMATION
  Report Type: 
  Country: None (occurrence: None)
  Receive Date: 20061103
  Receipt Date: 20061025
  Transmission Date: 20070319
  Serious: Yes (Hospitalization, Disabling)
  Sender: FDA-Public Use
  Company Number: DK-JNJFOC-20061006177

PATIENT
  Age: 78 Year
  Sex: Female
  Weight: 60 kg

DRUGS (7)
  1. REMICADE [Suspect]
     Route: 042
     Dates: start: 20051013
  2. REMICADE [Suspect]
     Dosage: TREATMENT RESUMED
     Route: 042
     Dates: start: 20051013
  3. REMICADE [Suspect]
     Dosage: TREATMENT TEMPORARILY STOPPED
     Route: 042
     Dates: start: 20051013
  4. REMICADE [Suspect]
     Route: 042
     Dates: start: 20051013
  5. REMICADE [Suspect]
     Route: 042
     Dates: start: 20051013
  6. REMICADE [Suspect]
     Indication: MUSCULOSKELETAL PAIN
     Route: 042
     Dates: start: 20051013
  7. METHOTREXATE [Concomitant]
     Route: 065

REACTIONS (2)
  - BOVINE TUBERCULOSIS [None]
  - PLEURAL EFFUSION [None]
